FAERS Safety Report 8100045-4 (Version None)
Quarter: 2012Q1

REPORT INFORMATION
  Report Type: 
  Country: None (occurrence: None)
  Receive Date: 20120129
  Receipt Date: 20111102
  Transmission Date: 20120608
  Serious: No
  Sender: FDA-Public Use
  Company Number: US-ABBOTT-11P-163-0870850-00

PATIENT
  Age: 38 Year
  Sex: Female

DRUGS (1)
  1. HUMIRA [Suspect]
     Indication: PSORIATIC ARTHROPATHY
     Dates: start: 20100301, end: 20111001

REACTIONS (7)
  - INFLUENZA [None]
  - PAIN [None]
  - PYREXIA [None]
  - MALAISE [None]
  - SINUS DISORDER [None]
  - NASOPHARYNGITIS [None]
  - INFECTION SUSCEPTIBILITY INCREASED [None]
